FAERS Safety Report 14237136 (Version 1)
Quarter: 2017Q4

REPORT INFORMATION
  Report Type: Spontaneous
  Country: US (occurrence: US)
  Receive Date: 20171129
  Receipt Date: 20171129
  Transmission Date: 20180321
  Serious: No
  Sender: FDA-Public Use
  Company Number: US-INCYTE CORPORATION-2017IN010087

PATIENT

DRUGS (1)
  1. JAKAFI [Suspect]
     Active Substance: RUXOLITINIB
     Indication: HAEMOCHROMATOSIS
     Dosage: 10 MG BID AT 2AM, AND 1PM
     Route: 048
     Dates: start: 20161222

REACTIONS (1)
  - Off label use [Unknown]
